FAERS Safety Report 7934770 (Version 9)
Quarter: 2013Q2

REPORT INFORMATION
  Report Type: Report from Study
  Country: RO (occurrence: RO)
  Receive Date: 20110509
  Receipt Date: 20130621
  Transmission Date: 20140414
  Serious: Yes (Life-Threatening, Hospitalization, Other)
  Sender: FDA-Public Use
  Company Number: RO-CELGENEUS-135-21880-11042163

PATIENT
  Age: 61 Year
  Sex: Male
  Weight: 79 kg

DRUGS (16)
  1. REVLIMID [Suspect]
     Indication: PLASMA CELL MYELOMA
     Dosage: DAY 1-21
     Route: 048
     Dates: start: 20110124, end: 20110213
  2. REVLIMID [Suspect]
     Dosage: DAY 1-11
     Route: 048
     Dates: start: 20110321, end: 20110331
  3. DEXAMETHASONE [Suspect]
     Indication: PLASMA CELL MYELOMA
     Dosage: DAYS 1, 8, 15 AND 22
     Route: 065
     Dates: start: 20110124, end: 20110214
  4. DEXAMETHASONE [Suspect]
     Dosage: DAY 1+8
     Route: 065
     Dates: start: 20110321, end: 20110328
  5. CARFILZOMIB [Suspect]
     Indication: PLASMA CELL MYELOMA
     Dosage: 40 MILLICURIES
     Route: 065
     Dates: start: 20110124, end: 20110125
  6. CARFILZOMIB [Suspect]
     Dosage: DAY 8-9, 15-16
     Route: 065
     Dates: start: 20110131, end: 20110208
  7. CARFILZOMIB [Suspect]
     Dosage: 54 MILLIGRAM
     Route: 065
     Dates: start: 20110321, end: 20110321
  8. ACYCLOVIR [Concomitant]
     Indication: ANTIVIRAL PROPHYLAXIS
     Dosage: 400 MILLIGRAM
     Route: 048
     Dates: start: 20110123, end: 20110221
  9. ASPIRINE [Concomitant]
     Indication: ANTICOAGULANT THERAPY
     Dosage: 100 MILLIGRAM
     Route: 048
     Dates: start: 20110123, end: 20110129
  10. CIPROFLOXACIN [Concomitant]
     Indication: ANTIBIOTIC PROPHYLAXIS
     Dosage: 500 MILLIGRAM
     Route: 048
     Dates: start: 20110123, end: 20110401
  11. EPOETINUM BETA [Concomitant]
     Indication: ANAEMIA
     Route: 058
     Dates: start: 20110126
  12. LANSOPRAZOL [Concomitant]
     Indication: PRODUCT USED FOR UNKNOWN INDICATION
     Dosage: 15 MILLIGRAM
     Route: 048
     Dates: start: 20110123, end: 20110401
  13. SPIRONOLACTONE [Concomitant]
     Indication: OEDEMA
     Dosage: 50 MILLIGRAM
     Route: 048
     Dates: start: 20110126, end: 20110131
  14. ZOMETA [Concomitant]
     Indication: PRODUCT USED FOR UNKNOWN INDICATION
     Route: 041
     Dates: start: 20110123, end: 20110220
  15. HELICID [Concomitant]
     Indication: PEPTIC ULCER
     Dosage: 40 MILLIGRAM
     Route: 048
     Dates: start: 20110114, end: 20110124
  16. CLOTRIMAZOLE [Concomitant]
     Indication: EAR INFECTION
     Dosage: .15 MILLIGRAM
     Route: 061
     Dates: start: 20110308, end: 20110316

REACTIONS (8)
  - Hypocalcaemia [Recovered/Resolved]
  - Hypoalbuminaemia [Recovered/Resolved]
  - Electrolyte imbalance [Not Recovered/Not Resolved]
  - Electrolyte imbalance [Not Recovered/Not Resolved]
  - Electrolyte imbalance [Recovered/Resolved]
  - Intestinal obstruction [Recovered/Resolved]
  - Hypoalbuminaemia [Not Recovered/Not Resolved]
  - Hypoalbuminaemia [Not Recovered/Not Resolved]
